FAERS Safety Report 6057484-5 (Version None)
Quarter: 2009Q1

REPORT INFORMATION
  Report Type: 
  Country: None (occurrence: None)
  Receive Date: 20090126
  Receipt Date: 20090107
  Transmission Date: 20090719
  Serious: Yes (Death)
  Sender: FDA-Public Use
  Company Number: B0553735A

PATIENT
  Age: 26 Year
  Sex: Male

DRUGS (5)
  1. LAMOTRIGINE [Suspect]
     Dosage: ORAL
     Route: 048
  2. DIPHENHYDRAMINE (FORMULATION UNKNOWN) (DIPHENHYDRAMINE) [Suspect]
  3. UNKNOWN (FORMULATION UNKNOWN) (UNKNOWN) [Suspect]
  4. TOPIRAMATE [Suspect]
  5. PANTOPRAZOLE (FORMULATION UNKNOWN) (PANTOPRAZOLE) [Suspect]

REACTIONS (1)
  - COMPLETED SUICIDE [None]
